FAERS Safety Report 6032819-8 (Version None)
Quarter: 2009Q1

REPORT INFORMATION
  Report Type: 
  Country: None (occurrence: None)
  Receive Date: 20090107
  Receipt Date: 20081222
  Transmission Date: 20090719
  Serious: Yes (Hospitalization)
  Sender: FDA-Public Use
  Company Number: 1-17146311

PATIENT
  Age: 15 Year
  Sex: Female

DRUGS (2)
  1. SOLODYN [Suspect]
     Indication: ACNE
     Dosage: 90 MG DAILY ORAL
     Route: 048
     Dates: start: 20080201, end: 20081119
  2. MULTIVITAMIN DAILY [Concomitant]

REACTIONS (9)
  - BRADYCARDIA [None]
  - INFECTIOUS MONONUCLEOSIS [None]
  - MALNUTRITION [None]
  - NEUTROPHIL COUNT DECREASED [None]
  - PHARYNGITIS [None]
  - PHARYNGITIS STREPTOCOCCAL [None]
  - TONSILLITIS [None]
  - WEIGHT DECREASED [None]
  - WHITE BLOOD CELL COUNT DECREASED [None]
